FAERS Safety Report 10652081 (Version 1)
Quarter: 2014Q4

REPORT INFORMATION
  Report Type: Spontaneous
  Country: US (occurrence: None)
  Receive Date: 20141212
  Receipt Date: 20141212
  Transmission Date: 20150529
  Serious: Yes (Life-Threatening, Other)
  Sender: FDA-Public Use
  Company Number: None

PATIENT
  Age: 22 Year
  Sex: Female
  Weight: 53.52 kg

DRUGS (1)
  1. GABAPENTIN. [Suspect]
     Active Substance: GABAPENTIN
     Indication: NEUROPATHY PERIPHERAL
     Dosage: 2 PILLS, THREE TIMES DAILY, TAKEN BY MOUTH
     Route: 048
     Dates: start: 20141010, end: 20141211

REACTIONS (13)
  - Hallucination, visual [None]
  - Depression suicidal [None]
  - Myalgia [None]
  - Depression [None]
  - Hyperaesthesia [None]
  - Obsessive thoughts [None]
  - Mood swings [None]
  - Fatigue [None]
  - Dry mouth [None]
  - Lymph node pain [None]
  - Mania [None]
  - Crying [None]
  - Lymphadenopathy [None]

NARRATIVE: CASE EVENT DATE: 20141211
